FAERS Safety Report 6612253-X (Version None)
Quarter: 2010Q1

REPORT INFORMATION
  Report Type: 
  Country: None (occurrence: None)
  Receive Date: 20100303
  Receipt Date: 20100224
  Transmission Date: 20100710
  Serious: Yes (Disabling)
  Sender: FDA-Public Use
  Company Number: GB-EISAI INC.-E3810-03561-SPO-GB

PATIENT
  Age: 61 Year
  Sex: Female
  Weight: 69 kg

DRUGS (2)
  1. PARIET (RABEPRAZOLE) [Suspect]
     Indication: IRRITABLE BOWEL SYNDROME
     Route: 048
     Dates: start: 20091101, end: 20100116
  2. LANSOPRAZOLE [Concomitant]
     Route: 048
     Dates: start: 20071101, end: 20091101

REACTIONS (3)
  - ABDOMINAL PAIN [None]
  - DIZZINESS [None]
  - SYNCOPE [None]
